FAERS Safety Report 22162089 (Version 2)
Quarter: 2023Q2

REPORT INFORMATION
  Report Type: Report from Study
  Country: NG (occurrence: NG)
  Receive Date: 20230331
  Receipt Date: 20230412
  Transmission Date: 20230722
  Serious: Yes (Hospitalization)
  Sender: FDA-Public Use
  Company Number: NG-002147023-NVSC2022NG275710

PATIENT
  Age: 36 Year
  Sex: Female
  Weight: 93 kg

DRUGS (14)
  1. SACUBITRIL\VALSARTAN [Suspect]
     Active Substance: SACUBITRIL\VALSARTAN
     Indication: Cardiac failure
     Dosage: 50 MG, BID (STARTED DRUG ON AN UNKNOWN DATE IN 2014/2015)
     Route: 048
  2. SACUBITRIL\VALSARTAN [Suspect]
     Active Substance: SACUBITRIL\VALSARTAN
     Dosage: 50 MG
     Route: 048
  3. SACUBITRIL\VALSARTAN [Suspect]
     Active Substance: SACUBITRIL\VALSARTAN
     Dosage: 25 MG, BID
     Route: 048
     Dates: start: 20221123
  4. SACUBITRIL\VALSARTAN [Suspect]
     Active Substance: SACUBITRIL\VALSARTAN
     Dosage: 25 MG, QD
     Route: 065
     Dates: start: 20230307
  5. SACUBITRIL\VALSARTAN [Suspect]
     Active Substance: SACUBITRIL\VALSARTAN
     Dosage: 25 MG, QD
     Route: 065
     Dates: start: 20230308
  6. SACUBITRIL\VALSARTAN [Suspect]
     Active Substance: SACUBITRIL\VALSARTAN
     Dosage: 25 MG, BID
     Route: 065
     Dates: start: 20230322, end: 20230405
  7. EMPAGLIFLOZIN [Concomitant]
     Active Substance: EMPAGLIFLOZIN
     Indication: Product used for unknown indication
     Dosage: 10 MG, QD
     Route: 048
  8. TORSINEX [Concomitant]
     Indication: Product used for unknown indication
     Dosage: 40 MG, BID
     Route: 048
  9. TORSINEX [Concomitant]
     Dosage: 20 MG, QD
     Route: 065
  10. SPIROCARD [Concomitant]
     Indication: Product used for unknown indication
     Dosage: 25 MG, QD
     Route: 048
  11. SPIRONOLACTONE [Concomitant]
     Active Substance: SPIRONOLACTONE
     Indication: Product used for unknown indication
     Dosage: 25 MG, QD
     Route: 065
  12. VASOPRIN [Concomitant]
     Indication: Product used for unknown indication
     Dosage: 1 DOSAGE FORM, QD
     Route: 065
  13. VASOPRESSIN [Concomitant]
     Active Substance: VASOPRESSIN
     Indication: Product used for unknown indication
     Dosage: UNK
     Route: 065
  14. METOLAZONE [Concomitant]
     Active Substance: METOLAZONE
     Indication: Product used for unknown indication
     Dosage: UNK
     Route: 065

REACTIONS (14)
  - Constipation [Unknown]
  - Urine output decreased [Unknown]
  - Bone pain [Unknown]
  - Hypotension [Recovering/Resolving]
  - Muscle spasms [Not Recovered/Not Resolved]
  - Insomnia [Recovering/Resolving]
  - Palpitations [Recovered/Resolved]
  - Frequent bowel movements [Recovered/Resolved]
  - Oedema peripheral [Not Recovered/Not Resolved]
  - Asthenia [Recovering/Resolving]
  - Dizziness [Recovering/Resolving]
  - Pain in extremity [Unknown]
  - Abdominal distension [Unknown]
  - Prescribed underdose [Unknown]

NARRATIVE: CASE EVENT DATE: 20210701
